FAERS Safety Report 5792984-4 (Version None)
Quarter: 2008Q2

REPORT INFORMATION
  Report Type: 
  Country: None (occurrence: None)
  Receive Date: 20080627
  Receipt Date: 20080616
  Transmission Date: 20081010
  Serious: Yes (Other)
  Sender: FDA-Public Use
  Company Number: US-ROCHE-570699

PATIENT
  Age: 87 Year
  Sex: Male

DRUGS (3)
  1. ROFERON-A [Suspect]
     Indication: MACULAR DEGENERATION
     Dosage: 9 MILLION IU, 0.5 ML.
     Route: 058
     Dates: start: 20060101
  2. AVASTIN [Concomitant]
     Dates: start: 20060101
  3. LUCENTIS [Concomitant]
     Dates: start: 20060101

REACTIONS (4)
  - BLINDNESS UNILATERAL [None]
  - EYE INJURY [None]
  - NEOVASCULARISATION [None]
  - VISUAL DISTURBANCE [None]
